FAERS Safety Report 6652526-8 (Version None)
Quarter: 2010Q1

REPORT INFORMATION
  Report Type: 
  Country: None (occurrence: None)
  Receive Date: 20100325
  Receipt Date: 20100325
  Transmission Date: 20100710
  Serious: Yes (Hospitalization)
  Sender: FDA-Public Use
  Company Number: None

PATIENT
  Age: 39 Year
  Sex: Male

DRUGS (1)
  1. CYCLOBENZAPRINE [Suspect]
     Indication: MYALGIA
     Dosage: 10 MG PRN PO
     Route: 048
     Dates: start: 20091230, end: 20100106

REACTIONS (3)
  - AGITATION [None]
  - CONFUSIONAL STATE [None]
  - HOMICIDAL IDEATION [None]
